FAERS Safety Report 10863706 (Version 2)
Quarter: 2015Q1

REPORT INFORMATION
  Report Type: Report from Study
  Country: US (occurrence: US)
  Receive Date: 20150223
  Receipt Date: 20150225
  Transmission Date: 20150721
  Serious: Yes (Other)
  Sender: FDA-Public Use
  Company Number: US-ABBVIE-15K-163-1348321-00

PATIENT
  Age: 62 Year
  Sex: Male

DRUGS (7)
  1. GLIPIZIDE. [Concomitant]
     Active Substance: GLIPIZIDE
     Indication: PRODUCT USED FOR UNKNOWN INDICATION
  2. HUMIRA [Suspect]
     Active Substance: ADALIMUMAB
     Indication: RHEUMATOID ARTHRITIS
     Route: 065
  3. NPH INSULIN [Concomitant]
     Active Substance: INSULIN BEEF
     Indication: PRODUCT USED FOR UNKNOWN INDICATION
     Dosage: IN THE NIGHT
  4. NPH INSULIN [Concomitant]
     Active Substance: INSULIN BEEF
     Dosage: IN MORNING
  5. METFORMIN [Concomitant]
     Active Substance: METFORMIN HYDROCHLORIDE
     Indication: PRODUCT USED FOR UNKNOWN INDICATION
  6. REGULAR INSULIN NOVO NORDISK [Concomitant]
     Dosage: IN NIGHT
  7. REGULAR INSULIN NOVO NORDISK [Concomitant]
     Indication: PRODUCT USED FOR UNKNOWN INDICATION
     Dosage: IN THE MORNING

REACTIONS (10)
  - Anger [Not Recovered/Not Resolved]
  - Therapeutic response unexpected [Unknown]
  - Blood glucose abnormal [Unknown]
  - Purulent discharge [Unknown]
  - Aortic bruit [Unknown]
  - Coronary artery occlusion [Unknown]
  - Cardiac murmur [Unknown]
  - Incision site haemorrhage [Unknown]
  - Incision site infection [Recovering/Resolving]
  - Unevaluable event [Unknown]

NARRATIVE: CASE EVENT DATE: 20150213
